FAERS Safety Report 4675814-3 (Version None)
Quarter: 2005Q2

REPORT INFORMATION
  Report Type: 
  Country: None (occurrence: None)
  Receive Date: 20050527
  Receipt Date: 20050510
  Transmission Date: 20051028
  Serious: Yes (Hospitalization)
  Sender: FDA-Public Use
  Company Number: US-BRISTOL-MYERS SQUIBB COMPANY-12963633

PATIENT
  Age: 72 Year
  Sex: Male
  Weight: 76 kg

DRUGS (6)
  1. CETUXIMAB [Suspect]
     Indication: NON-SMALL CELL LUNG CANCER
     Route: 042
     Dates: start: 20050426, end: 20050426
  2. CARBOPLATIN [Suspect]
     Indication: NON-SMALL CELL LUNG CANCER
     Route: 042
     Dates: start: 20050504, end: 20050504
  3. PACLITAXEL [Suspect]
     Indication: NON-SMALL CELL LUNG CANCER
     Route: 042
     Dates: start: 20050504, end: 20050504
  4. LASIX [Concomitant]
     Dates: start: 20050504
  5. TYLENOL (CAPLET) [Concomitant]
     Dates: start: 20050503
  6. CARDIZEM [Concomitant]
     Dates: start: 20030101

REACTIONS (14)
  - ABDOMINAL DISCOMFORT [None]
  - AORTIC VALVE SCLEROSIS [None]
  - ASTHENIA [None]
  - CHOLELITHIASIS [None]
  - CONSTIPATION [None]
  - DEHYDRATION [None]
  - EJECTION FRACTION DECREASED [None]
  - GASTROOESOPHAGEAL REFLUX DISEASE [None]
  - HAEMORRHOIDAL HAEMORRHAGE [None]
  - MALIGNANT NEOPLASM PROGRESSION [None]
  - MYOCARDIAL INFARCTION [None]
  - NAUSEA [None]
  - NON-SMALL CELL LUNG CANCER [None]
  - PERICARDIAL EFFUSION [None]
